FAERS Safety Report 12111218 (Version 1)
Quarter: 2016Q1

REPORT INFORMATION
  Report Type: Report from Study
  Country: US (occurrence: US)
  Receive Date: 20160224
  Receipt Date: 20160224
  Transmission Date: 20160526
  Serious: Yes (Hospitalization)
  Sender: FDA-Public Use
  Company Number: US-JAZZ-2015-US-006456

PATIENT
  Age: 33 Year
  Sex: Male
  Weight: 71.5 kg

DRUGS (12)
  1. PRIALT [Suspect]
     Active Substance: ZICONOTIDE ACETATE
     Dosage: 0.031 ?G, QH
     Route: 037
     Dates: start: 20141210, end: 20141222
  2. PRIALT [Suspect]
     Active Substance: ZICONOTIDE ACETATE
     Indication: PAIN
     Dosage: 0.045 ?G, QH
     Route: 037
     Dates: start: 20141016, end: 20141205
  3. BUPIVACAINE HYDROCHLORIDE. [Concomitant]
     Active Substance: BUPIVACAINE HYDROCHLORIDE
     Dosage: 0.075 MG, QH
     Route: 037
     Dates: start: 20141222, end: 20150107
  4. BUPIVACAINE HYDROCHLORIDE. [Concomitant]
     Active Substance: BUPIVACAINE HYDROCHLORIDE
     Dosage: 0.09 MG, QH
     Route: 037
     Dates: start: 20150107, end: 20150113
  5. GABAPENTIN. [Concomitant]
     Active Substance: GABAPENTIN
     Indication: PAIN
     Dosage: 600 MG, UNK
     Dates: start: 20130626
  6. BACLOFEN. [Concomitant]
     Active Substance: BACLOFEN
     Indication: MUSCLE RELAXANT THERAPY
     Dosage: 10 MG, UNK
     Dates: start: 20140820
  7. BUPIVACAINE HYDROCHLORIDE. [Concomitant]
     Active Substance: BUPIVACAINE HYDROCHLORIDE
     Indication: PAIN
     Dosage: 0.062 MG, QH
     Route: 037
     Dates: start: 20141210, end: 20141222
  8. BUPIVACAINE HYDROCHLORIDE. [Concomitant]
     Active Substance: BUPIVACAINE HYDROCHLORIDE
     Dosage: UNK MG, QH
     Route: 037
     Dates: start: 20150113, end: 20150218
  9. PRIALT [Suspect]
     Active Substance: ZICONOTIDE ACETATE
     Dosage: 0.067 ?G, QH
     Route: 037
     Dates: start: 20141205, end: 20141210
  10. PRIALT [Suspect]
     Active Substance: ZICONOTIDE ACETATE
     Dosage: 0.037 ?G, QH
     Route: 037
     Dates: start: 20141222, end: 20150107
  11. PRIALT [Suspect]
     Active Substance: ZICONOTIDE ACETATE
     Dosage: 0.045 ?G, QH
     Route: 037
     Dates: start: 20150107, end: 20150113
  12. PRIALT [Suspect]
     Active Substance: ZICONOTIDE ACETATE
     Dosage: 0.002 ?G, QH
     Route: 037
     Dates: start: 20150113, end: 20150208

REACTIONS (1)
  - Psychotic disorder [Recovered/Resolved]

NARRATIVE: CASE EVENT DATE: 20141205
